FAERS Safety Report 17127515 (Version 1)
Quarter: 2019Q4

REPORT INFORMATION
  Report Type: Spontaneous
  Country: US (occurrence: US)
  Receive Date: 20191209
  Receipt Date: 20191209
  Transmission Date: 20200122
  Serious: Yes (Hospitalization, Other)
  Sender: FDA-Public Use
  Company Number: US-GLAXOSMITHKLINE-US2019219194

PATIENT
  Sex: Female

DRUGS (1)
  1. ROPINIROLE. [Suspect]
     Active Substance: ROPINIROLE
     Indication: RESTLESS LEGS SYNDROME
     Dosage: 8 MG, QD
     Route: 065

REACTIONS (9)
  - Limb discomfort [Unknown]
  - Anaemia [Unknown]
  - Gait inability [Unknown]
  - Barium impaction [Unknown]
  - Poisoning [Unknown]
  - Full blood count decreased [Unknown]
  - Blood arsenic increased [Unknown]
  - Alopecia [Unknown]
  - Blood heavy metal increased [Unknown]

NARRATIVE: CASE EVENT DATE: 2019
